FAERS Safety Report 16460058 (Version 1)
Quarter: 2019Q2

REPORT INFORMATION
  Report Type: Spontaneous
  Country: US (occurrence: US)
  Receive Date: 20190620
  Receipt Date: 20190620
  Transmission Date: 20190711
  Serious: No
  Sender: FDA-Public Use
  Company Number: US-ASTRAZENECA-2019SE77994

PATIENT
  Age: 23306 Day
  Sex: Female

DRUGS (6)
  1. CORCIDIN LIQUID GELS [Concomitant]
     Indication: PYREXIA
     Dates: start: 20190520
  2. SYMBICORT [Suspect]
     Active Substance: BUDESONIDE\FORMOTEROL FUMARATE DIHYDRATE
     Indication: BRONCHITIS
     Dosage: 160/4.5, 2 PUFFS TWO TIMES A DAY
     Route: 055
  3. LOSARTAN POTASSIUM. [Concomitant]
     Active Substance: LOSARTAN POTASSIUM
  4. HYDROCHLOROTHIAZIDE. [Concomitant]
     Active Substance: HYDROCHLOROTHIAZIDE
     Indication: BLOOD PRESSURE MEASUREMENT
     Route: 048
  5. METFORMIN [Concomitant]
     Active Substance: METFORMIN HYDROCHLORIDE
  6. CORCIDIN LIQUID GELS [Concomitant]
     Indication: ARTHRALGIA
     Dates: start: 20190520

REACTIONS (14)
  - Bronchitis [Unknown]
  - Arthralgia [Unknown]
  - Diabetes mellitus [Unknown]
  - Off label use [Unknown]
  - Product use in unapproved indication [Unknown]
  - Rhinorrhoea [Unknown]
  - Pain [Unknown]
  - Pyrexia [Unknown]
  - Memory impairment [Unknown]
  - Intentional product misuse [Unknown]
  - Sneezing [Unknown]
  - Cough [Unknown]
  - Oropharyngeal pain [Unknown]
  - Hypertension [Unknown]

NARRATIVE: CASE EVENT DATE: 20190517
